FAERS Safety Report 9659390 (Version 2)
Quarter: 2013Q4

REPORT INFORMATION
  Report Type: Spontaneous
  Country: FR (occurrence: FR)
  Receive Date: 20131031
  Receipt Date: 20131031
  Transmission Date: 20140711
  Serious: Yes (Other)
  Sender: FDA-Public Use
  Company Number: FR-JNJFOC-20130911220

PATIENT
  Age: 22 Year
  Sex: Female
  Weight: 80 kg

DRUGS (4)
  1. XEPLION [Suspect]
     Indication: PSYCHOTIC DISORDER
     Route: 030
     Dates: start: 20130730, end: 20130730
  2. XEPLION [Suspect]
     Indication: PSYCHOTIC DISORDER
     Route: 030
  3. XEPLION [Suspect]
     Indication: AFFECTIVE DISORDER
     Route: 030
     Dates: start: 20130730, end: 20130730
  4. XEPLION [Suspect]
     Indication: AFFECTIVE DISORDER
     Route: 030

REACTIONS (3)
  - Injection site cyst [Unknown]
  - Underdose [Unknown]
  - Injection site induration [Unknown]
